FAERS Safety Report 9511000 (Version 1)
Quarter: 2013Q3

REPORT INFORMATION
  Report Type: Spontaneous
  Country: US (occurrence: None)
  Receive Date: 20130909
  Receipt Date: 20130909
  Transmission Date: 20140515
  Serious: Yes (Other)
  Sender: FDA-Public Use
  Company Number: None

PATIENT
  Sex: Female
  Weight: 125.19 kg

DRUGS (1)
  1. ORTHO NOVUM 1/35 [Suspect]
     Indication: CONTRACEPTION
     Dosage: 0.5MG MORETHIN ONE DAILY FOR 21 DAY ORAL?0.035 MG GENTINYL ESTRAGY
     Route: 048
     Dates: start: 201212, end: 20130802

REACTIONS (1)
  - Pregnancy on oral contraceptive [None]
